FAERS Safety Report 19126633 (Version 1)
Quarter: 2021Q2

REPORT INFORMATION
  Report Type: Spontaneous
  Country: US (occurrence: IT)
  Receive Date: 20210412
  Receipt Date: 20210412
  Transmission Date: 20210717
  Serious: No
  Sender: FDA-Public Use
  Company Number: IT-SA-2021SA104731

PATIENT
  Age: 78 Year
  Sex: Female

DRUGS (8)
  1. LOBIDIUR [Concomitant]
     Active Substance: HYDROCHLOROTHIAZIDE\NEBIVOLOL HYDROCHLORIDE
     Dosage: 5 MG, QD
     Route: 065
  2. FORXIGA [Concomitant]
     Active Substance: DAPAGLIFLOZIN
     Dosage: 10 MG, QD
     Route: 065
  3. TRASTUZUMAB. [Concomitant]
     Active Substance: TRASTUZUMAB
     Dosage: UNK, Q4W
     Route: 065
  4. TOUJEO [Suspect]
     Active Substance: INSULIN GLARGINE
     Indication: DIABETES MELLITUS
     Dosage: 14 IU, QD
     Route: 065
     Dates: start: 2019
  5. HUMALOG [Concomitant]
     Active Substance: INSULIN LISPRO
     Dosage: UNK, TID (HUMALOG 12 UNITS FOR BREAKFAST, 17 UNITS FOR LUNCH AND 14 FOR DINNER)
     Route: 065
  6. LANSOPRAZOLE. [Concomitant]
     Active Substance: LANSOPRAZOLE
     Dosage: 1 DF, QD
     Route: 065
  7. MEGESTIL [Concomitant]
     Active Substance: MEGESTROL ACETATE
     Dosage: 1 DF, QD
     Route: 065
  8. AMLODIPINE;INDAPAMIDE;PERINDOPRIL [Concomitant]
     Active Substance: AMLODIPINE\INDAPAMIDE\PERINDOPRIL
     Dosage: UNK
     Route: 065

REACTIONS (2)
  - Hyperglycaemia [Recovered/Resolved]
  - Device occlusion [Recovered/Resolved]
